FAERS Safety Report 5371882-4 (Version None)
Quarter: 2007Q2

REPORT INFORMATION
  Report Type: 
  Country: None (occurrence: None)
  Receive Date: 20070627
  Receipt Date: 20070615
  Transmission Date: 20071010
  Serious: Yes (Hospitalization)
  Sender: FDA-Public Use
  Company Number: US-JNJFOC-20070604359

PATIENT
  Age: 41 Year
  Sex: Female
  Weight: 108.86 kg

DRUGS (6)
  1. RISPERDAL [Suspect]
     Indication: SCHIZOPHRENIA
     Route: 048
  2. ALTACE [Concomitant]
     Route: 048
  3. LASIX [Concomitant]
     Route: 048
  4. POTASSIUM CHLORIDE [Concomitant]
     Route: 048
  5. LIPITOR [Concomitant]
     Route: 048
  6. TOPROL-XL [Concomitant]
     Route: 048

REACTIONS (2)
  - PHARMACEUTICAL PRODUCT COUNTERFEIT [None]
  - THERAPEUTIC RESPONSE DECREASED [None]
